FAERS Safety Report 5017026-X (Version None)
Quarter: 2006Q2

REPORT INFORMATION
  Report Type: 
  Country: None (occurrence: None)
  Receive Date: 20060525
  Receipt Date: 20060512
  Transmission Date: 20061013
  Serious: Yes (Hospitalization)
  Sender: FDA-Public Use
  Company Number: 2006S1000050

PATIENT
  Age: 50 Year
  Sex: Female

DRUGS (19)
  1. CUBICIN [Suspect]
     Indication: OSTEOMYELITIS
     Dosage: 320 MG;Q24H;IV
     Route: 042
  2. RIFAMPIN [Suspect]
     Indication: OSTEOMYELITIS
     Dates: start: 20060101, end: 20060309
  3. VANCOMYIN [Suspect]
     Indication: OSTEOMYELITIS
     Dosage: 1 GM;Q12H;IV
     Route: 042
     Dates: start: 20060214, end: 20060317
  4. VANCOMYCIN [Concomitant]
  5. RIFAMPIN [Concomitant]
  6. ROCEPHIN [Concomitant]
  7. INSULIN [Concomitant]
  8. CAPTOPRIL [Concomitant]
  9. ATORVASTATIN CALCIUM [Concomitant]
  10. METOCLOPRAMIDE [Concomitant]
  11. VALPROATE SODIUM [Concomitant]
  12. ACETYLSALICYLIC ACID SRT [Concomitant]
  13. GLUCOSAMINE [Concomitant]
  14. LEVOTHYROXINE SODIUM [Concomitant]
  15. PSEUDOEPHEDRINE HCL [Concomitant]
  16. ESTROGENS [Concomitant]
  17. CALCIUM CITRATE [Concomitant]
  18. VITAMIN D [Concomitant]
  19. PIPERACILLIN SODIUM/TAZOBACTAM SODIUM [Concomitant]

REACTIONS (11)
  - CHILLS [None]
  - DRUG TOXICITY [None]
  - EOSINOPHILIA [None]
  - NEPHRITIS INTERSTITIAL [None]
  - NEUTROPHIL COUNT INCREASED [None]
  - PYREXIA [None]
  - RASH [None]
  - RENAL FAILURE ACUTE [None]
  - SKIN EXFOLIATION [None]
  - SWELLING [None]
  - WHITE BLOOD CELL COUNT INCREASED [None]
